FAERS Safety Report 7238195-7 (Version None)
Quarter: 2011Q1

REPORT INFORMATION
  Report Type: 
  Country: None (occurrence: None)
  Receive Date: 20110121
  Receipt Date: 20110118
  Transmission Date: 20110831
  Serious: No
  Sender: FDA-Public Use
  Company Number: US-PFIZER INC-2010167459

PATIENT
  Sex: Female

DRUGS (5)
  1. DETROL [Suspect]
     Indication: MICTURITION DISORDER
     Dosage: 2 MG, 1X/DAY
     Route: 048
     Dates: start: 20101012
  2. LOVASTATIN [Concomitant]
     Dosage: 40 MG, UNK
  3. CITALOPRAM [Concomitant]
     Dosage: UNK
  4. CAPTOPRIL [Concomitant]
     Dosage: 50 MG, UNK
  5. TOPROL-XL [Concomitant]
     Dosage: UNK

REACTIONS (3)
  - DRUG INEFFECTIVE [None]
  - SOMNOLENCE [None]
  - FATIGUE [None]
